FAERS Safety Report 7707731-6 (Version None)
Quarter: 2011Q3

REPORT INFORMATION
  Report Type: 
  Country: None (occurrence: None)
  Receive Date: 20110824
  Receipt Date: 20110817
  Transmission Date: 20111222
  Serious: Yes (Hospitalization)
  Sender: FDA-Public Use
  Company Number: KR-AMGEN-KORSP2011042049

PATIENT
  Age: 40 Year
  Sex: Male

DRUGS (4)
  1. DIOVAN [Concomitant]
     Dosage: 80 MG, QD
  2. CINACALCET HYDROCHLORIDE [Suspect]
     Indication: HYPERPARATHYROIDISM SECONDARY
     Dosage: UNK
     Route: 048
  3. EXFORGE [Concomitant]
     Dosage: UNK
  4. NORVASC [Concomitant]
     Dosage: 5 MG, QD

REACTIONS (1)
  - HYPOTENSION [None]
